FAERS Safety Report 25957696 (Version 1)
Quarter: 2025Q4

REPORT INFORMATION
  Report Type: Report from Study
  Country: CA (occurrence: CA)
  Receive Date: 20251024
  Receipt Date: 20251024
  Transmission Date: 20260117
  Serious: Yes (Other)
  Sender: JOHNSON AND JOHNSON
  Company Number: CA-JNJFOC-20251005060

PATIENT

DRUGS (4)
  1. ABIRATERONE [Suspect]
     Active Substance: ABIRATERONE
     Indication: Hormone-refractory prostate cancer
     Route: 048
  2. PREDNISONE [Suspect]
     Active Substance: PREDNISONE
     Indication: Hormone-refractory prostate cancer
     Route: 065
  3. ENZALUTAMIDE [Suspect]
     Active Substance: ENZALUTAMIDE
     Indication: Hormone-refractory prostate cancer
     Route: 048
  4. CABAZITAXEL [Suspect]
     Active Substance: CABAZITAXEL
     Indication: Hormone-refractory prostate cancer
     Route: 042

REACTIONS (22)
  - Blood alkaline phosphatase increased [Unknown]
  - Anaemia [Unknown]
  - Fatigue [Unknown]
  - Haematuria [Unknown]
  - Hypertension [Unknown]
  - Hypercalcaemia [Unknown]
  - Infection [Unknown]
  - Neuropathy peripheral [Unknown]
  - Musculoskeletal pain [Unknown]
  - Vomiting [Unknown]
  - Nausea [Unknown]
  - Cardiac disorder [Unknown]
  - Constipation [Unknown]
  - Diarrhoea [Unknown]
  - Dyspnoea [Unknown]
  - Oedema [Unknown]
  - Fracture [Unknown]
  - Haemorrhage [Unknown]
  - Hot flush [Unknown]
  - Malaise [Unknown]
  - Nervous system disorder [Unknown]
  - Skin disorder [Unknown]
